FAERS Safety Report 7222808-X (Version None)
Quarter: 2011Q1

REPORT INFORMATION
  Report Type: 
  Country: None (occurrence: None)
  Receive Date: 20110106
  Receipt Date: 20110106
  Transmission Date: 20110831
  Serious: Yes (Other)
  Sender: FDA-Public Use
  Company Number: None

PATIENT
  Age: 36 Year
  Sex: Female
  Weight: 107.5025 kg

DRUGS (2)
  1. TOPAMAX [Suspect]
     Indication: MIGRAINE
     Dosage: 50MG 1 MORN 1 NIGHT
     Dates: start: 20101118
  2. TOPAMAX [Suspect]
     Indication: WEIGHT CONTROL
     Dosage: 50MG 1 MORN 1 NIGHT
     Dates: start: 20101118

REACTIONS (2)
  - DYSPNOEA [None]
  - BLEPHAROSPASM [None]
